FAERS Safety Report 18040308 (Version 1)
Quarter: 2020Q3

REPORT INFORMATION
  Report Type: Spontaneous
  Country: DE (occurrence: DE)
  Receive Date: 20200717
  Receipt Date: 20200717
  Transmission Date: 20201103
  Serious: Yes (Other)
  Sender: FDA-Public Use
  Company Number: DE-BAUSCH-BL-2020-020054

PATIENT
  Age: 43 Year
  Sex: Female
  Weight: 48 kg

DRUGS (9)
  1. DEXAMETHASON [Suspect]
     Active Substance: DEXAMETHASONE
     Indication: PREMEDICATION
     Dosage: DAY 1 TO DAY 3
     Route: 042
     Dates: start: 20200409, end: 20200409
  2. UROMITEXAN [Suspect]
     Active Substance: MESNA
     Dosage: DOSE REDUCED
     Route: 042
     Dates: start: 20200430, end: 20200430
  3. FOSTER [Concomitant]
     Active Substance: BECLOMETHASONE\FORMOTEROL
     Indication: PRODUCT USED FOR UNKNOWN INDICATION
     Route: 065
  4. APREPITANT. [Concomitant]
     Active Substance: APREPITANT
     Indication: PRODUCT USED FOR UNKNOWN INDICATION
     Dosage: 1X125 MG, 2 DAYS 85 MG, DAY 1 TO DAY 3
     Route: 065
  5. UROMITEXAN [Suspect]
     Active Substance: MESNA
     Indication: PREMEDICATION
     Route: 065
     Dates: start: 20200409, end: 20200409
  6. FENISTIL [Suspect]
     Active Substance: DIMETHINDENE
     Indication: PREMEDICATION
     Route: 042
     Dates: start: 20200409, end: 20200409
  7. UROMITEXAN [Suspect]
     Active Substance: MESNA
     Dosage: DOSE RE?INTRODUCED
     Route: 042
  8. FAMOTIDIN [Suspect]
     Active Substance: FAMOTIDINE
     Indication: PREMEDICATION
     Route: 042
     Dates: start: 20200409, end: 20200409
  9. ONDANSETRON [Concomitant]
     Active Substance: ONDANSETRON
     Indication: PRODUCT USED FOR UNKNOWN INDICATION
     Dosage: DAY 1 TO DAY 3
     Route: 065

REACTIONS (15)
  - Anuria [Unknown]
  - Throat tightness [Unknown]
  - Micturition disorder [Recovered/Resolved]
  - Malaise [Unknown]
  - Hyperhidrosis [Unknown]
  - Hot flush [Unknown]
  - Abdominal pain [Recovered/Resolved]
  - Nausea [Unknown]
  - Dyspnoea [Recovered/Resolved]
  - Muscle spasms [Unknown]
  - Suffocation feeling [Unknown]
  - Abdominal distension [Unknown]
  - Abdominal discomfort [Unknown]
  - Burning sensation [Unknown]
  - Myalgia [Unknown]

NARRATIVE: CASE EVENT DATE: 202004
